FAERS Safety Report 8967714 (Version 1)
Quarter: 2012Q4

REPORT INFORMATION
  Report Type: Spontaneous
  Country: US (occurrence: None)
  Receive Date: 20121213
  Receipt Date: 20121213
  Transmission Date: 20130627
  Serious: Yes (Hospitalization, Other)
  Sender: FDA-Public Use
  Company Number: None

PATIENT
  Age: 73 Year
  Sex: Male

DRUGS (1)
  1. PRIMIDONE [Suspect]
     Dosage: 250 MG PO TID
     Route: 048
     Dates: end: 20120810

REACTIONS (4)
  - Lethargy [None]
  - Gait disturbance [None]
  - Speech disorder [None]
  - Acute respiratory failure [None]
